FAERS Safety Report 9850579 (Version 2)
Quarter: 2014Q1

REPORT INFORMATION
  Report Type: Spontaneous
  Country: US (occurrence: None)
  Receive Date: 20131127
  Receipt Date: 20140228
  Transmission Date: 20141002
  Serious: No
  Sender: FDA-Public Use
  Company Number: 224160LEO

PATIENT
  Age: 50 Year
  Sex: Female

DRUGS (1)
  1. PICATO GEL [Suspect]
     Indication: ACTINIC KERATOSIS
     Dosage: (1 D)
     Dates: start: 20130925

REACTIONS (3)
  - Application site pain [None]
  - Application site discharge [None]
  - Application site dryness [None]
